FAERS Safety Report 15673059 (Version 2)
Quarter: 2019Q1

REPORT INFORMATION
  Report Type: Spontaneous
  Country: US (occurrence: US)
  Receive Date: 20181129
  Receipt Date: 20190103
  Transmission Date: 20190417
  Serious: No
  Sender: FDA-Public Use
  Company Number: US-SA-2018SA325443

PATIENT
  Sex: Female

DRUGS (1)
  1. LANTUS [Suspect]
     Active Substance: INSULIN GLARGINE
     Dosage: 20 U, QD

REACTIONS (6)
  - Blood glucose increased [Unknown]
  - Product storage error [Unknown]
  - Injection site pain [Unknown]
  - Device operational issue [Unknown]
  - Injection site rash [Unknown]
  - Injury associated with device [Unknown]
